FAERS Safety Report 4803347-X (Version None)
Quarter: 2005Q4

REPORT INFORMATION
  Report Type: 
  Country: None (occurrence: None)
  Receive Date: 20051013
  Receipt Date: 20051004
  Transmission Date: 20060501
  Serious: Yes (Death, Other)
  Sender: FDA-Public Use
  Company Number: 2005-10-0210

PATIENT
  Age: 70 Year
  Sex: Male

DRUGS (2)
  1. INTEGRILIN [Suspect]
     Indication: CORONARY ARTERY SURGERY
     Dosage: SEE IMAGE
     Route: 042
     Dates: start: 20050901, end: 20050901
  2. HEPARIN [Concomitant]

REACTIONS (7)
  - CHILLS [None]
  - DYSPNOEA [None]
  - PLATELET COUNT DECREASED [None]
  - PULMONARY EMBOLISM [None]
  - TACHYCARDIA [None]
  - TREMOR [None]
  - WHITE BLOOD CELL COUNT INCREASED [None]
